FAERS Safety Report 7101492-X (Version None)
Quarter: 2010Q4

REPORT INFORMATION
  Report Type: 
  Country: None (occurrence: None)
  Receive Date: 20101108
  Receipt Date: 20101025
  Transmission Date: 20110411
  Serious: Yes (Hospitalization)
  Sender: FDA-Public Use
  Company Number: 2010070274

PATIENT
  Sex: Male

DRUGS (3)
  1. DALTEPARIN SODIUM [Suspect]
     Indication: LUNG NEOPLASM MALIGNANT
     Dates: start: 20100305
  2. CARBOPLATIN [Concomitant]
  3. ETOPOSIDE [Concomitant]

REACTIONS (2)
  - HYPERKALAEMIA [None]
  - RENAL IMPAIRMENT [None]
